FAERS Safety Report 16794702 (Version 2)
Quarter: 2019Q4

REPORT INFORMATION
  Report Type: Spontaneous
  Country: US (occurrence: US)
  Receive Date: 20190911
  Receipt Date: 20191111
  Transmission Date: 20200122
  Serious: Yes (Hospitalization, Other)
  Sender: FDA-Public Use
  Company Number: US-ELI_LILLY_AND_COMPANY-US201908015082

PATIENT
  Age: 81 Year
  Sex: Male

DRUGS (8)
  1. MAGNESIUM OXIDE. [Concomitant]
     Active Substance: MAGNESIUM OXIDE
     Indication: MUSCLE SPASMS
     Dosage: UNK
     Dates: start: 20181120, end: 20181124
  2. CIALIS [Suspect]
     Active Substance: TADALAFIL
     Indication: ERECTILE DYSFUNCTION
     Dosage: 20 MG, 2/W
     Route: 065
     Dates: start: 20110421, end: 201106
  3. VIAGRA [Suspect]
     Active Substance: SILDENAFIL CITRATE
     Indication: ERECTILE DYSFUNCTION
     Dosage: 100 MG, WEEKLY (1/W)
     Route: 065
     Dates: start: 20030319, end: 20130310
  4. VALIUM [Concomitant]
     Active Substance: DIAZEPAM
     Indication: SLEEP DISORDER
  5. NAMENDA XR [Concomitant]
     Active Substance: MEMANTINE HYDROCHLORIDE
     Indication: MEMORY IMPAIRMENT
     Dosage: UNK
  6. ASPIRIN [ACETYLSALICYLIC ACID] [Concomitant]
     Active Substance: ASPIRIN
     Indication: PAIN
     Dosage: UNK, PRN
  7. MELATONIN [Concomitant]
     Active Substance: MELATONIN
     Indication: SLEEP DISORDER
     Dosage: UNK
     Dates: start: 2017
  8. ARICEPT [Concomitant]
     Active Substance: DONEPEZIL HYDROCHLORIDE
     Indication: MEMORY IMPAIRMENT
     Dosage: UNK

REACTIONS (4)
  - Pneumonia [Recovered/Resolved]
  - Non-Hodgkin^s lymphoma [Unknown]
  - Malignant melanoma [Unknown]
  - Melanoma recurrent [Unknown]

NARRATIVE: CASE EVENT DATE: 20140623
